FAERS Safety Report 5601090-0 (Version None)
Quarter: 2008Q1

REPORT INFORMATION
  Report Type: 
  Country: None (occurrence: None)
  Receive Date: 20080124
  Receipt Date: 20080114
  Transmission Date: 20080703
  Serious: Yes (Other)
  Sender: FDA-Public Use
  Company Number: BR-ASTRAZENECA-2008UW01104

PATIENT
  Age: 47 Year
  Sex: Female

DRUGS (2)
  1. ARIMIDEX [Suspect]
     Indication: HORMONE SUPPRESSION THERAPY
     Route: 048
     Dates: start: 20061001
  2. DIFFERIN [Concomitant]
     Indication: MINERAL SUPPLEMENTATION
     Route: 048
     Dates: start: 20070401, end: 20070501

REACTIONS (6)
  - FATIGUE [None]
  - HYPERTENSION [None]
  - KNEE DEFORMITY [None]
  - NEURALGIA [None]
  - SWELLING [None]
  - WEIGHT INCREASED [None]
